FAERS Safety Report 23999895 (Version 1)
Quarter: 2024Q2

REPORT INFORMATION
  Report Type: Spontaneous
  Country: CN (occurrence: CN)
  Receive Date: 20240621
  Receipt Date: 20240621
  Transmission Date: 20240716
  Serious: Yes (Other)
  Sender: FDA-Public Use
  Company Number: CN-PFIZER INC-PV202400080405

PATIENT
  Age: 29 Year
  Sex: Female

DRUGS (1)
  1. METHOTREXATE SODIUM [Suspect]
     Active Substance: METHOTREXATE SODIUM
     Indication: Ectopic pregnancy
     Dosage: 0.05 G, 1X/DAY
     Route: 030
     Dates: start: 20240604, end: 20240604

REACTIONS (5)
  - Muscle rigidity [Recovering/Resolving]
  - Trismus [Recovering/Resolving]
  - Depressed level of consciousness [Recovering/Resolving]
  - Seizure [Recovering/Resolving]
  - Off label use [Unknown]

NARRATIVE: CASE EVENT DATE: 20240604
